FAERS Safety Report 6077799-4 (Version None)
Quarter: 2009Q1

REPORT INFORMATION
  Report Type: 
  Country: None (occurrence: None)
  Receive Date: 20090213
  Receipt Date: 20090203
  Transmission Date: 20090719
  Serious: Yes (Other)
  Sender: FDA-Public Use
  Company Number: BR-PFIZER INC-2009168193

PATIENT

DRUGS (1)
  1. MARAVIROC [Suspect]
     Indication: HIV INFECTION
     Dosage: UNKOWN
     Route: 048

REACTIONS (1)
  - TENDONITIS [None]
